FAERS Safety Report 10281982 (Version 5)
Quarter: 2014Q4

REPORT INFORMATION
  Report Type: Report from Study
  Country: SI (occurrence: SI)
  Receive Date: 20140707
  Receipt Date: 20141211
  Transmission Date: 20150528
  Serious: Yes (Other)
  Sender: FDA-Public Use
  Company Number: PHHY2014SI082870

PATIENT
  Age: 50 Year
  Sex: Female

DRUGS (3)
  1. EXTAVIA [Suspect]
     Active Substance: INTERFERON BETA-1B
     Indication: MULTIPLE SCLEROSIS RELAPSE
     Dosage: 8 MIU (1 ML, 250UG), QOD
     Route: 058
     Dates: start: 201306, end: 20141110
  2. EUTHYROX [Concomitant]
     Active Substance: LEVOTHYROXINE SODIUM
     Indication: THYROID DISORDER
     Dosage: 25 UG, IN 24 HOURS
     Route: 048
     Dates: start: 2002
  3. MICARDIS [Concomitant]
     Active Substance: TELMISARTAN
     Indication: HYPERTENSION
     Dosage: 40 MG, IN 24 HRS
     Route: 048
     Dates: start: 2000

REACTIONS (9)
  - Central nervous system lesion [Unknown]
  - Feeling abnormal [Recovering/Resolving]
  - Blood pressure abnormal [Recovering/Resolving]
  - Multiple sclerosis [Unknown]
  - Dyskinesia [Recovering/Resolving]
  - Multiple sclerosis relapse [Unknown]
  - Musculoskeletal stiffness [Not Recovered/Not Resolved]
  - Gait disturbance [Recovering/Resolving]
  - Pain in extremity [Not Recovered/Not Resolved]

NARRATIVE: CASE EVENT DATE: 20140607
